FAERS Safety Report 7727182-8 (Version None)
Quarter: 2011Q3

REPORT INFORMATION
  Report Type: 
  Country: None (occurrence: None)
  Receive Date: 20110902
  Receipt Date: 20110127
  Transmission Date: 20111222
  Serious: No
  Sender: FDA-Public Use
  Company Number: US-BAYER-2011-010562

PATIENT
  Age: 32 Year
  Sex: Male

DRUGS (2)
  1. MAGNEVIST [Suspect]
     Route: 042
  2. CORTICOSTEROIDS [Concomitant]
     Indication: PREMEDICATION

REACTIONS (1)
  - NAUSEA [None]
